FAERS Safety Report 9909999 (Version 1)
Quarter: 2014Q1

REPORT INFORMATION
  Report Type: Report from Study
  Country: US (occurrence: US)
  Receive Date: 20140219
  Receipt Date: 20140219
  Transmission Date: 20141002
  Serious: Yes (Hospitalization, Other)
  Sender: FDA-Public Use
  Company Number: US-ABBVIE-14P-163-1200618-00

PATIENT
  Age: 62 Year
  Sex: Male
  Weight: 65.83 kg

DRUGS (2)
  1. HUMIRA [Suspect]
     Indication: RHEUMATOID ARTHRITIS
     Dates: start: 201302, end: 201312
  2. HUMIRA [Suspect]
     Dates: start: 201312

REACTIONS (5)
  - Intervertebral disc protrusion [Recovering/Resolving]
  - Nerve injury [Recovering/Resolving]
  - Nervous system disorder [Unknown]
  - Back pain [Not Recovered/Not Resolved]
  - Drug ineffective [Recovered/Resolved]
